FAERS Safety Report 5596961-8 (Version None)
Quarter: 2007Q4

REPORT INFORMATION
  Report Type: 
  Country: None (occurrence: None)
  Receive Date: 20071220
  Receipt Date: 20070131
  Transmission Date: 20080405
  Serious: Yes (Life-Threatening, Hospitalization)
  Sender: FDA-Public Use
  Company Number: 260508

PATIENT
  Age: 53 Year
  Sex: Male
  Weight: 118.8 kg

DRUGS (7)
  1. NOVOLOG MIX 70/30 [Suspect]
     Indication: TYPE 2 DIABETES MELLITUS
     Dosage: 60 IU, BID
     Dates: start: 20050801, end: 20060417
  2. AVANDIA (ROSIGLITAZONE MALEATE) CAPSULE [Concomitant]
  3. METFORMIN /00082702/ (METFORMIN HYDROCHLORIDE) [Concomitant]
  4. GLYBURIDE [Concomitant]
  5. METOPROLOL / 00376902/ (METOPROLOL TARTRATE) [Concomitant]
  6. LIPITOR [Concomitant]
  7. ASPIRIN [Concomitant]

REACTIONS (1)
  - ANAPHYLACTIC SHOCK [None]
